FAERS Safety Report 6556585-2 (Version None)
Quarter: 2010Q1

REPORT INFORMATION
  Report Type: 
  Country: None (occurrence: None)
  Receive Date: 20100128
  Receipt Date: 20100115
  Transmission Date: 20100710
  Serious: Yes (Hospitalization)
  Sender: FDA-Public Use
  Company Number: US-CELGENEUS-163-CCAZA-09011349

PATIENT
  Sex: Female
  Weight: 46 kg

DRUGS (32)
  1. AZACITIDINE INJECTABLE [Suspect]
     Indication: MYELODYSPLASTIC SYNDROME
     Route: 058
     Dates: start: 20090113, end: 20090120
  2. AZACITIDINE INJECTABLE [Suspect]
     Route: 048
     Dates: start: 20090805, end: 20090811
  3. FLAGYL [Suspect]
     Indication: THROMBOCYTOPENIA
     Route: 051
     Dates: start: 20090122, end: 20090124
  4. LEVAQUIN [Concomitant]
     Indication: ORAL INFECTION
     Route: 048
     Dates: start: 20090114, end: 20090119
  5. ACYCLOVIR [Concomitant]
     Indication: ORAL INFECTION
     Route: 048
     Dates: start: 20090114, end: 20090917
  6. TYLENOL-500 [Concomitant]
     Indication: TRANSFUSION
     Route: 048
     Dates: start: 20090114, end: 20090118
  7. TYLENOL-500 [Concomitant]
     Indication: PROPHYLAXIS
     Route: 048
     Dates: start: 20090122, end: 20090917
  8. ATIVAN [Concomitant]
     Route: 051
     Dates: start: 20090121, end: 20090121
  9. ATIVAN [Concomitant]
     Route: 051
     Dates: start: 20090112, end: 20090112
  10. BENADRYL [Concomitant]
     Indication: PROPHYLAXIS
     Route: 048
     Dates: start: 20090122, end: 20090122
  11. BENADRYL [Concomitant]
     Indication: PRURITUS
     Route: 051
     Dates: start: 20090124
  12. LASIX [Concomitant]
     Indication: PROPHYLAXIS
     Route: 051
     Dates: start: 20090120, end: 20090121
  13. CIPRO [Concomitant]
     Indication: ORAL INFECTION
     Route: 048
     Dates: start: 20090115, end: 20090908
  14. DIFLUCAN [Concomitant]
     Indication: INFECTION
     Route: 048
     Dates: start: 20090124
  15. POTASSIUM PHOSPHATES [Concomitant]
     Indication: DRUG USE FOR UNKNOWN INDICATION
     Route: 051
     Dates: start: 20090124
  16. PHENERGAN HCL [Concomitant]
     Indication: NAUSEA
     Route: 048
     Dates: start: 20090124
  17. AMBIEN [Concomitant]
     Indication: INSOMNIA
     Route: 048
     Dates: start: 20090124
  18. NORMAL SALINE [Concomitant]
     Indication: PROPHYLAXIS AGAINST DEHYDRATION
     Route: 051
     Dates: start: 20090124, end: 20090127
  19. MAGNESIUM SULFATE [Concomitant]
     Route: 051
     Dates: start: 20090124
  20. MAGNESIUM TAB SR [Concomitant]
     Route: 048
     Dates: start: 20090124
  21. OXYCODONE [Concomitant]
     Indication: PAIN
     Route: 048
     Dates: start: 20090124
  22. K-DUR [Concomitant]
     Route: 048
     Dates: start: 20090124
  23. MAALOX [Concomitant]
     Indication: DYSPEPSIA
     Route: 048
     Dates: start: 20090124
  24. AMICAR [Concomitant]
     Indication: DRUG USE FOR UNKNOWN INDICATION
     Route: 048
     Dates: start: 20090122
  25. IMMUNE GLOBULIN INTRAVENOUS (HUMAN) [Concomitant]
     Route: 051
     Dates: start: 20090126, end: 20090128
  26. CLARITIN [Concomitant]
     Route: 048
     Dates: start: 20081124
  27. ASTELIN [Concomitant]
     Route: 045
     Dates: start: 20081124
  28. CITRACAL [Concomitant]
     Route: 048
     Dates: start: 20081124
  29. MIRALAX [Concomitant]
     Indication: CONSTIPATION
     Route: 048
     Dates: start: 20081124
  30. CULTURELLE [Concomitant]
     Indication: CONSTIPATION
     Route: 048
     Dates: start: 20081124
  31. FOLTX [Concomitant]
     Indication: MALABSORPTION
     Route: 048
     Dates: start: 20081124
  32. VITAMINS [Concomitant]
     Indication: ROUTINE HEALTH MAINTENANCE
     Route: 048
     Dates: start: 20081124

REACTIONS (3)
  - HAEMORRHAGE [None]
  - HYPOTENSION [None]
  - THROMBOCYTOPENIA [None]
